FAERS Safety Report 10601484 (Version 2)
Quarter: 2014Q4

REPORT INFORMATION
  Report Type: Spontaneous
  Country: JP (occurrence: JP)
  Receive Date: 20141124
  Receipt Date: 20141126
  Transmission Date: 20150529
  Serious: Yes (Death)
  Sender: FDA-Public Use
  Company Number: JP-PFIZER INC-2014322031

PATIENT
  Age: 59 Year
  Sex: Male

DRUGS (1)
  1. CELECOX [Suspect]
     Active Substance: CELECOXIB
     Dosage: TABLET 100 MG
     Route: 065
     Dates: start: 201211, end: 201402

REACTIONS (1)
  - Interstitial lung disease [Fatal]
